FAERS Safety Report 10209403 (Version 2)
Quarter: 2014Q2

REPORT INFORMATION
  Report Type: Spontaneous
  Country: GB (occurrence: GB)
  Receive Date: 20140531
  Receipt Date: 20140620
  Transmission Date: 20141212
  Serious: Yes (Death, Hospitalization)
  Sender: FDA-Public Use
  Company Number: 2014SP002995

PATIENT
  Age: 79 Year
  Sex: Female
  Weight: 91.4 kg

DRUGS (11)
  1. DOXORUBICIN [Suspect]
     Indication: DIFFUSE LARGE B-CELL LYMPHOMA
     Route: 042
     Dates: start: 20140108, end: 20140402
  2. LEVOFLOXACIN [Suspect]
     Indication: UPPER RESPIRATORY TRACT INFECTION
     Route: 048
  3. PREDNISOLONE [Suspect]
     Indication: DIFFUSE LARGE B-CELL LYMPHOMA
     Route: 048
     Dates: start: 20140108, end: 20140406
  4. CYCLOPHOSPHAMIDE [Suspect]
     Indication: DIFFUSE LARGE B-CELL LYMPHOMA
     Route: 042
     Dates: start: 20140108, end: 20140402
  5. RITUXIMAB [Suspect]
     Indication: DIFFUSE LARGE B-CELL LYMPHOMA
     Route: 042
     Dates: start: 20140108, end: 20140402
  6. VINCRISTINE [Suspect]
     Indication: DIFFUSE LARGE B-CELL LYMPHOMA
     Route: 042
     Dates: start: 20140108, end: 20140402
  7. CLOBETASOL PROPIONATE [Concomitant]
  8. SULPHAMETHOXAZOLE [Concomitant]
  9. TRIMETHOPRIM [Concomitant]
  10. OMEPRAZOLE [Concomitant]
  11. ACICLOVIR [Concomitant]

REACTIONS (6)
  - Sudden death [Fatal]
  - Upper respiratory tract infection [Not Recovered/Not Resolved]
  - Dyspnoea [Unknown]
  - Lower respiratory tract infection [Unknown]
  - Malaise [Unknown]
  - Body temperature increased [Unknown]
